FAERS Safety Report 14543153 (Version 2)
Quarter: 2018Q2

REPORT INFORMATION
  Report Type: Spontaneous
  Country: KR (occurrence: KR)
  Receive Date: 20180216
  Receipt Date: 20180410
  Transmission Date: 20180711
  Serious: Yes (Hospitalization, Other)
  Sender: FDA-Public Use
  Company Number: KR-BAYER-2018-026134

PATIENT
  Sex: Female

DRUGS (8)
  1. MIRENA [Suspect]
     Active Substance: LEVONORGESTREL
     Indication: ADENOMYOSIS
     Dosage: 20 MCG/24HR, CONT
     Route: 015
     Dates: start: 20171014, end: 20180202
  2. MIRENA [Suspect]
     Active Substance: LEVONORGESTREL
  3. YAZ [Suspect]
     Active Substance: DROSPIRENONE\ETHINYL ESTRADIOL
     Indication: DYSMENORRHOEA
     Dosage: UNK
     Route: 048
     Dates: start: 2006, end: 2013
  4. QLAIRA [Suspect]
     Active Substance: DIENOGEST\ESTRADIOL VALERATE
     Route: 048
  5. YAZ [Suspect]
     Active Substance: DROSPIRENONE\ETHINYL ESTRADIOL
     Indication: MENSTRUAL CYCLE MANAGEMENT
  6. YASMIN [Suspect]
     Active Substance: DROSPIRENONE\ETHINYL ESTRADIOL
     Indication: DYSMENORRHOEA
     Dosage: UNK
     Route: 048
     Dates: start: 2006, end: 2013
  7. YASMIN [Suspect]
     Active Substance: DROSPIRENONE\ETHINYL ESTRADIOL
     Indication: MENSTRUAL CYCLE MANAGEMENT
  8. DIANE (CYPROTERONE ACETATE\ETHINYL ESTRADIOL) [Suspect]
     Active Substance: CYPROTERONE ACETATE\ETHINYL ESTRADIOL
     Dosage: UNK
     Route: 048
     Dates: start: 2013, end: 2013

REACTIONS (30)
  - Cholelithotomy [None]
  - Product use in unapproved indication [None]
  - Folliculitis [None]
  - Off label use of device [None]
  - Device use issue [None]
  - Dyspepsia [Not Recovered/Not Resolved]
  - Gastrointestinal disorder [None]
  - Fat tissue increased [None]
  - Thrombosis [None]
  - Acne [None]
  - Uterine pain [None]
  - Flatulence [None]
  - Immunodeficiency [None]
  - Renal disorder [None]
  - Abdominal pain lower [None]
  - Oedema [None]
  - Libido decreased [None]
  - Menopausal symptoms [None]
  - Abdominal pain lower [None]
  - Gastrointestinal disorder [Recovered/Resolved]
  - Abdominal discomfort [Not Recovered/Not Resolved]
  - Adenomyosis [None]
  - Seborrhoeic dermatitis [Not Recovered/Not Resolved]
  - Ovarian cyst [Recovered/Resolved]
  - Depression [None]
  - Adrenal disorder [None]
  - Weight increased [None]
  - Pelvic pain [None]
  - Off label use [None]
  - Weight loss poor [None]

NARRATIVE: CASE EVENT DATE: 2006
